FAERS Safety Report 5375187-7 (Version None)
Quarter: 2007Q2

REPORT INFORMATION
  Report Type: 
  Country: None (occurrence: None)
  Receive Date: 20070629
  Receipt Date: 20070626
  Transmission Date: 20071010
  Serious: Yes (Life-Threatening)
  Sender: FDA-Public Use
  Company Number: US-ASTRAZENECA-2007UW15109

PATIENT
  Age: 30 Year
  Sex: Female

DRUGS (4)
  1. SEROQUEL [Suspect]
     Dosage: WHOLE BOTTLE
  2. KLONOPIN [Suspect]
     Dosage: WHOLE BOTTLE
  3. ACETAMINOPHEN [Suspect]
     Dosage: 1/2 BOTTLE 500 MG
  4. ALCOHOL [Suspect]

REACTIONS (1)
  - MULTIPLE DRUG OVERDOSE INTENTIONAL [None]
